FAERS Safety Report 6615349-1 (Version None)
Quarter: 2010Q1

REPORT INFORMATION
  Report Type: 
  Country: None (occurrence: None)
  Receive Date: 20100305
  Receipt Date: 20090730
  Transmission Date: 20100710
  Serious: No
  Sender: FDA-Public Use
  Company Number: A0800756A

PATIENT
  Age: 53 Year
  Sex: Female

DRUGS (10)
  1. REQUIP [Suspect]
     Indication: RESTLESS LEGS SYNDROME
     Route: 048
     Dates: start: 20070501
  2. VESICARE [Concomitant]
  3. PROTONIX [Concomitant]
  4. CRESTOR [Concomitant]
  5. ZYRTEC [Concomitant]
  6. VERAPAMIL [Concomitant]
  7. SYNTHROID [Concomitant]
  8. PAXIL [Concomitant]
  9. MINOCYCLINE HCL [Concomitant]
  10. VITAMIN E [Concomitant]

REACTIONS (1)
  - ROSACEA [None]
